FAERS Safety Report 17308547 (Version 1)
Quarter: 2020Q1

REPORT INFORMATION
  Report Type: Spontaneous
  Country: US (occurrence: US)
  Receive Date: 20200123
  Receipt Date: 20200123
  Transmission Date: 20200409
  Serious: No
  Sender: FDA-Public Use
  Company Number: US-SA-2020SA017401

PATIENT
  Age: 26 Year
  Sex: Female

DRUGS (1)
  1. DUPIXENT [Suspect]
     Active Substance: DUPILUMAB
     Dosage: 300 MG

REACTIONS (6)
  - Influenza like illness [Unknown]
  - Rash papular [Unknown]
  - Dizziness [Unknown]
  - Injection site bruising [Unknown]
  - Injection site rash [Unknown]
  - Arthralgia [Unknown]
